FAERS Safety Report 8205953-1 (Version None)
Quarter: 2012Q1

REPORT INFORMATION
  Report Type: 
  Country: None (occurrence: None)
  Receive Date: 20120313
  Receipt Date: 20120229
  Transmission Date: 20120608
  Serious: Yes (Hospitalization)
  Sender: FDA-Public Use
  Company Number: US-JNJFOC-20110700106

PATIENT
  Age: 87 Year
  Sex: Male
  Weight: 63.5 kg

DRUGS (2)
  1. ACETAMINOPHEN [Suspect]
     Indication: ARTHRALGIA
     Dosage: 1 CAPLET ONE TIME ONLY
     Route: 048
     Dates: start: 20110601, end: 20110601
  2. ACETAMINOPHEN [Suspect]
     Route: 048

REACTIONS (3)
  - NAUSEA [None]
  - DIZZINESS [None]
  - FATIGUE [None]
